FAERS Safety Report 4601988-6 (Version None)
Quarter: 2005Q2

REPORT INFORMATION
  Report Type: 
  Country: None (occurrence: None)
  Receive Date: 20050215
  Receipt Date: 20041111
  Transmission Date: 20051028
  Serious: Yes (Hospitalization)
  Sender: FDA-Public Use
  Company Number: 386258

PATIENT
  Sex: Female

DRUGS (4)
  1. PEGASYS [Suspect]
     Indication: HEPATITIS C
     Dosage: SUBCUTANEOUS
     Route: 058
     Dates: start: 20041015
  2. COPEGUS [Suspect]
     Indication: HEPATITIS C
     Dosage: 600 MG DAILY    ORAL
     Route: 048
     Dates: start: 20041015
  3. B-12 (CYANOCOBALAMIN) [Interacting]
  4. IRON SUPPLEMENT (IRON NOS) [Concomitant]

REACTIONS (12)
  - ABDOMINAL PAIN UPPER [None]
  - ANGINA PECTORIS [None]
  - BODY TEMPERATURE INCREASED [None]
  - DEHYDRATION [None]
  - GASTRITIS [None]
  - HAEMOGLOBIN DECREASED [None]
  - OEDEMA PERIPHERAL [None]
  - PYREXIA [None]
  - RASH [None]
  - RED BLOOD CELL COUNT DECREASED [None]
  - SWELLING [None]
  - WEIGHT DECREASED [None]
